FAERS Safety Report 5511901-5 (Version None)
Quarter: 2007Q4

REPORT INFORMATION
  Report Type: 
  Country: None (occurrence: None)
  Receive Date: 20071109
  Receipt Date: 20071029
  Transmission Date: 20080405
  Serious: Yes (Hospitalization, Other)
  Sender: FDA-Public Use
  Company Number: US-PFIZER INC-2007091505

PATIENT
  Sex: Male
  Weight: 77.1 kg

DRUGS (6)
  1. DILANTIN [Suspect]
     Indication: EPILEPSY
     Route: 048
  2. FOLIC ACID [Concomitant]
  3. WARFARIN SODIUM [Concomitant]
  4. CALCIUM WITH VITAMIN D [Concomitant]
  5. FOSAMAX [Concomitant]
  6. PHENOBARBITAL TAB [Concomitant]

REACTIONS (9)
  - ACTIVITIES OF DAILY LIVING IMPAIRED [None]
  - ANTICONVULSANT DRUG LEVEL ABNORMAL [None]
  - BONE DENSITY DECREASED [None]
  - COMA [None]
  - CONFUSIONAL STATE [None]
  - CONVULSION [None]
  - FATIGUE [None]
  - LOSS OF CONSCIOUSNESS [None]
  - LOWER LIMB FRACTURE [None]
